FAERS Safety Report 24527316 (Version 1)
Quarter: 2024Q4

REPORT INFORMATION
  Report Type: Spontaneous
  Country: TR (occurrence: TR)
  Receive Date: 20241021
  Receipt Date: 20241021
  Transmission Date: 20250115
  Serious: No
  Sender: ROCHE
  Company Number: TR-ROCHE-3568264

PATIENT
  Age: 69 Year
  Sex: Male

DRUGS (6)
  1. COBIMETINIB [Suspect]
     Active Substance: COBIMETINIB
     Indication: Malignant melanoma
     Route: 065
  2. VEMURAFENIB [Concomitant]
     Active Substance: VEMURAFENIB
  3. PRIMOVIST [Concomitant]
     Active Substance: GADOXETATE DISODIUM
  4. CIPROFLOXACIN [Concomitant]
     Active Substance: CIPROFLOXACIN
  5. METRONIDAZOLE [Concomitant]
     Active Substance: METRONIDAZOLE
  6. NIVOLUMAB [Concomitant]
     Active Substance: NIVOLUMAB
     Route: 065

REACTIONS (1)
  - Ocular toxicity [Recovered/Resolved]
